FAERS Safety Report 18689785 (Version 3)
Quarter: 2021Q1

REPORT INFORMATION
  Report Type: Spontaneous
  Country: IT (occurrence: IT)
  Receive Date: 20201231
  Receipt Date: 20210126
  Transmission Date: 20210419
  Serious: Yes (Death, Other)
  Sender: FDA-Public Use
  Company Number: IT-ALXN-A202019381

PATIENT
  Age: 64 Year
  Sex: Male

DRUGS (12)
  1. ROCEFIN [Concomitant]
     Active Substance: CEFTRIAXONE SODIUM
     Indication: PROPHYLAXIS
     Dosage: 2 G, UNK
     Route: 042
     Dates: start: 202012, end: 202012
  2. PROPOFOL. [Concomitant]
     Active Substance: PROPOFOL
     Indication: SEDATION
     Dosage: UNK, CONTINUOUS
     Route: 042
     Dates: start: 202012, end: 202012
  3. PROPOFOL. [Concomitant]
     Active Substance: PROPOFOL
     Indication: NEUROMUSCULAR BLOCKING THERAPY
  4. ROCURONIUM BROMIDE. [Concomitant]
     Active Substance: ROCURONIUM BROMIDE
     Indication: SEDATION
     Dosage: UNK, CONTINUOUS
     Route: 042
     Dates: start: 202012, end: 202012
  5. ROCURONIUM BROMIDE. [Concomitant]
     Active Substance: ROCURONIUM BROMIDE
     Indication: NEUROMUSCULAR BLOCKING THERAPY
  6. NOREPINEPHRINE. [Concomitant]
     Active Substance: NOREPINEPHRINE
     Dosage: 2?4 MCG/MIN, CONTINUOUS
     Route: 042
     Dates: start: 202012, end: 202012
  7. REMIFENTANIL [Concomitant]
     Active Substance: REMIFENTANIL
     Indication: NEUROMUSCULAR BLOCKING THERAPY
  8. SOLIRIS [Suspect]
     Active Substance: ECULIZUMAB
     Indication: PRODUCT USED FOR UNKNOWN INDICATION
     Dosage: UNK
     Route: 065
  9. NOREPINEPHRINE. [Concomitant]
     Active Substance: NOREPINEPHRINE
     Indication: HAEMODYNAMIC INSTABILITY
     Dosage: 8?12 MCG/MIN PER CONTINUOUS INFUSION
     Route: 042
     Dates: start: 202012, end: 202012
  10. NOREPINEPHRINE. [Concomitant]
     Active Substance: NOREPINEPHRINE
     Dosage: UNK, CONTINUOUS
     Route: 042
  11. SOLIRIS [Suspect]
     Active Substance: ECULIZUMAB
     Dosage: 900 MG, UNK
     Route: 065
     Dates: end: 20201221
  12. REMIFENTANIL [Concomitant]
     Active Substance: REMIFENTANIL
     Indication: SEDATION
     Dosage: UNK, CONTINUOUS
     Route: 042
     Dates: start: 202012, end: 202012

REACTIONS (3)
  - Acute respiratory distress syndrome [Fatal]
  - Pulmonary embolism [Unknown]
  - Multiple organ dysfunction syndrome [Fatal]

NARRATIVE: CASE EVENT DATE: 20201209
